FAERS Safety Report 7281315-9 (Version None)
Quarter: 2011Q1

REPORT INFORMATION
  Report Type: 
  Country: None (occurrence: None)
  Receive Date: 20110203
  Receipt Date: 20110203
  Transmission Date: 20110831
  Serious: Yes (Hospitalization)
  Sender: FDA-Public Use
  Company Number: None

PATIENT
  Sex: Male
  Weight: 80.9 kg

DRUGS (7)
  1. DEXAMETHASONE [Concomitant]
  2. ALPRAZOLAM [Concomitant]
  3. CALCIUM CARBONATE [Concomitant]
  4. TEMODAR [Suspect]
     Dosage: 150 MG DAILY PO
     Route: 048
     Dates: start: 20100701, end: 20100722
  5. ZOFRAN [Concomitant]
  6. PANTOPRAZOLE [Concomitant]
  7. PENTMIDINE [Concomitant]

REACTIONS (4)
  - GLIOBLASTOMA MULTIFORME [None]
  - NAUSEA [None]
  - NEOPLASM PROGRESSION [None]
  - VOMITING [None]
